FAERS Safety Report 7006201-0 (Version None)
Quarter: 2010Q3

REPORT INFORMATION
  Report Type: 
  Country: None (occurrence: None)
  Receive Date: 20100917
  Receipt Date: 20100903
  Transmission Date: 20110219
  Serious: Yes (Life-Threatening, Hospitalization, Other)
  Sender: FDA-Public Use
  Company Number: AUR-APL-2010-02178

PATIENT
  Age: 88 Year
  Sex: Female

DRUGS (8)
  1. RISPERIDONE [Suspect]
     Indication: SENILE PSYCHOSIS
     Dosage: 1MG, DAILY, ORAL
     Route: 048
     Dates: start: 20100728
  2. BUMETANIDE [Suspect]
     Indication: PULMONARY OEDEMA
     Dosage: 1.5MG, BID, ORAL
     Route: 048
     Dates: start: 20100813, end: 20100814
  3. AMLODIPINE [Concomitant]
  4. DOXAZOSIN MESYLATE [Concomitant]
  5. FLUCLOXACILLIN [Concomitant]
  6. FUROSEMIDE [Concomitant]
  7. MOXONIDINE [Concomitant]
  8. ZOPICLONE [Concomitant]

REACTIONS (7)
  - ASTHENIA [None]
  - BRADYCARDIA [None]
  - CELLULITIS [None]
  - DRUG HYPERSENSITIVITY [None]
  - HYPOTENSION [None]
  - HYPOTHERMIA [None]
  - RALES [None]
